FAERS Safety Report 4730970-3 (Version None)
Quarter: 2005Q3

REPORT INFORMATION
  Report Type: 
  Country: None (occurrence: None)
  Receive Date: 20050719
  Receipt Date: 20040707
  Transmission Date: 20060218
  Serious: Yes (Other)
  Sender: FDA-Public Use
  Company Number: 201025

PATIENT
  Age: 28 Year
  Sex: Female
  Weight: 61.2356 kg

DRUGS (1)
  1. AVONEX [Suspect]
     Indication: MULTIPLE SCLEROSIS
     Dosage: 30UG;QW;IM
     Route: 030

REACTIONS (1)
  - ABORTION SPONTANEOUS [None]
